FAERS Safety Report 10236471 (Version 1)
Quarter: 2014Q2

REPORT INFORMATION
  Report Type: Spontaneous
  Country: US (occurrence: None)
  Receive Date: 20140612
  Receipt Date: 20140612
  Transmission Date: 20141212
  Serious: Yes (Other)
  Sender: FDA-Public Use
  Company Number: None

PATIENT
  Age: 9 Year
  Sex: Female
  Weight: 49 kg

DRUGS (2)
  1. LAMICTAL XR 300 MG [Suspect]
     Indication: CONVULSION
     Dosage: 2 QD PO
     Route: 048
     Dates: start: 20140317
  2. LAMICTAL XR 300 MG [Suspect]
     Indication: AUTISM
     Dosage: 2 QD PO
     Route: 048
     Dates: start: 20140317

REACTIONS (5)
  - Convulsion [None]
  - Abnormal behaviour [None]
  - Condition aggravated [None]
  - Product substitution issue [None]
  - Therapeutic response changed [None]
